APPROVED DRUG PRODUCT: IRBESARTAN AND HYDROCHLOROTHIAZIDE
Active Ingredient: HYDROCHLOROTHIAZIDE; IRBESARTAN
Strength: 12.5MG;150MG
Dosage Form/Route: TABLET;ORAL
Application: A091539 | Product #001
Applicant: WATSON LABORATORIES INC
Approved: Oct 22, 2012 | RLD: No | RS: No | Type: DISCN